FAERS Safety Report 5745999-6 (Version None)
Quarter: 2008Q2

REPORT INFORMATION
  Report Type: 
  Country: None (occurrence: None)
  Receive Date: 20080520
  Receipt Date: 20080502
  Transmission Date: 20081010
  Serious: Yes (Hospitalization)
  Sender: FDA-Public Use
  Company Number: 2008AL003451

PATIENT
  Age: 75 Year
  Sex: Male

DRUGS (1)
  1. DIGOXIN [Suspect]
     Dosage: 0.25 MG DAILY PO
     Route: 048

REACTIONS (2)
  - PALPITATIONS [None]
  - RENAL FAILURE [None]
